FAERS Safety Report 7888353-3 (Version None)
Quarter: 2011Q4

REPORT INFORMATION
  Report Type: 
  Country: None (occurrence: None)
  Receive Date: 20111103
  Receipt Date: 20111026
  Transmission Date: 20120403
  Serious: Yes (Other)
  Sender: FDA-Public Use
  Company Number: PHEH2011US07994

PATIENT
  Sex: Female
  Weight: 125 kg

DRUGS (7)
  1. RECLAST [Suspect]
     Indication: OSTEOPOROSIS
     Dosage: 5 MG / 100 ML YEARLY
     Route: 042
     Dates: start: 20111019, end: 20111019
  2. ENALAPRIL MALEATE [Concomitant]
  3. PLAVIX [Concomitant]
  4. ACTOS [Concomitant]
  5. ASPIRIN [Concomitant]
  6. GABAPENTIN [Concomitant]
  7. NITROGLYCERIN [Concomitant]

REACTIONS (15)
  - RESPIRATORY DISTRESS [None]
  - FIBRIN D DIMER INCREASED [None]
  - ASTHENIA [None]
  - NAUSEA [None]
  - C-REACTIVE PROTEIN INCREASED [None]
  - PYREXIA [None]
  - CHILLS [None]
  - PAIN [None]
  - MYALGIA [None]
  - BLOOD UREA INCREASED [None]
  - BONE PAIN [None]
  - VOMITING [None]
  - WHITE BLOOD CELL COUNT INCREASED [None]
  - CHEST PAIN [None]
  - RED BLOOD CELL SEDIMENTATION RATE INCREASED [None]
